FAERS Safety Report 6414382-2 (Version None)
Quarter: 2009Q4

REPORT INFORMATION
  Report Type: 
  Country: None (occurrence: None)
  Receive Date: 20091021
  Receipt Date: 20091009
  Transmission Date: 20100525
  Serious: Yes (Other)
  Sender: FDA-Public Use
  Company Number: 220003J09CAN

PATIENT
  Age: 11 Year
  Sex: Female

DRUGS (1)
  1. SAIZEN [Suspect]
     Dosage: 1.78 MG, 1 IN 1 DAYS
     Dates: start: 20080319, end: 20090101

REACTIONS (2)
  - MIGRAINE [None]
  - VISION BLURRED [None]
